FAERS Safety Report 4829244-1 (Version None)
Quarter: 2005Q4

REPORT INFORMATION
  Report Type: 
  Country: None (occurrence: None)
  Receive Date: 20051028
  Receipt Date: 20040820
  Transmission Date: 20060501
  Serious: Yes (Hospitalization)
  Sender: FDA-Public Use
  Company Number: TPA2004A01020

PATIENT
  Age: 64 Year
  Sex: Male
  Weight: 100.6985 kg

DRUGS (8)
  1. ACTOS [Suspect]
     Indication: DIABETES MELLITUS NON-INSULIN-DEPENDENT
     Dosage: 30 MG, 2 IN 1 D, PER ORAL; 15 MG, 1 IN 1 D, PER ORAL
     Route: 048
     Dates: start: 20021201, end: 20021210
  2. ASPIRIN [Concomitant]
  3. DIFLUCAN (FLUCONAZOLE) [Concomitant]
  4. BACTRIM [Concomitant]
  5. LIPITOR [Concomitant]
  6. TOPROL (METOPROLOL) [Concomitant]
  7. VALTREX [Concomitant]
  8. GLIPIZIDE [Concomitant]

REACTIONS (4)
  - BLOOD GLUCOSE DECREASED [None]
  - BLOOD GLUCOSE INCREASED [None]
  - HEPATOCELLULAR DAMAGE [None]
  - LYMPHOMA [None]
